FAERS Safety Report 23898576 (Version 1)
Quarter: 2024Q2

REPORT INFORMATION
  Report Type: Spontaneous
  Country: US (occurrence: US)
  Receive Date: 20240525
  Receipt Date: 20240525
  Transmission Date: 20240716
  Serious: No
  Sender: FDA-Public Use
  Company Number: US-TEVA-VS-3197564

PATIENT
  Age: 67 Year
  Sex: Male

DRUGS (1)
  1. ALBUTEROL SULFATE [Suspect]
     Active Substance: ALBUTEROL SULFATE
     Indication: Product used for unknown indication
     Dosage: TWO PUFFS
     Route: 055
     Dates: start: 20240505

REACTIONS (3)
  - Pharyngeal hypoaesthesia [Unknown]
  - Hypoaesthesia oral [Unknown]
  - Dysphagia [Unknown]
